FAERS Safety Report 20946997 (Version 1)
Quarter: 2022Q2

REPORT INFORMATION
  Report Type: Spontaneous
  Country: DE (occurrence: DE)
  Receive Date: 20220610
  Receipt Date: 20220610
  Transmission Date: 20220720
  Serious: Yes (Death, Hospitalization, Other)
  Sender: FDA-Public Use
  Company Number: DE-SA-2019SA040899

PATIENT
  Age: 62 Year
  Sex: Female
  Weight: 62 kg

DRUGS (9)
  1. DILTIAZEM HYDROCHLORIDE [Suspect]
     Active Substance: DILTIAZEM HYDROCHLORIDE
     Indication: Product used for unknown indication
     Route: 065
  2. ENOXAPARIN SODIUM [Suspect]
     Active Substance: ENOXAPARIN SODIUM
     Indication: Product used for unknown indication
     Route: 065
  3. RIVAROXABAN [Suspect]
     Active Substance: RIVAROXABAN
     Indication: Venous thrombosis
     Route: 065
     Dates: start: 20170622, end: 20170713
  4. RIVAROXABAN [Suspect]
     Active Substance: RIVAROXABAN
     Route: 065
     Dates: start: 20170714, end: 20170731
  5. PIROXICAM [Concomitant]
     Active Substance: PIROXICAM
     Indication: Product used for unknown indication
     Dates: start: 2013, end: 2017
  6. DILTIAZEM [Concomitant]
     Active Substance: DILTIAZEM
     Indication: Product used for unknown indication
  7. VALSARTAN [Concomitant]
     Active Substance: VALSARTAN
     Indication: Product used for unknown indication
  8. CERTOPARIN SODIUM [Concomitant]
     Active Substance: CERTOPARIN SODIUM
     Indication: Product used for unknown indication
     Dates: start: 20170731
  9. PANTOPRAZOLE SODIUM [Concomitant]
     Active Substance: PANTOPRAZOLE SODIUM
     Indication: Product used for unknown indication

REACTIONS (41)
  - Pancytopenia [Fatal]
  - Arrhythmogenic right ventricular dysplasia [Fatal]
  - Cardiac failure [Fatal]
  - Shock haemorrhagic [Fatal]
  - Peritoneal haematoma [Fatal]
  - Hypokalaemia [Unknown]
  - Hypocalcaemia [Unknown]
  - Thrombocytopenia [Unknown]
  - Malnutrition [Unknown]
  - Gastrointestinal inflammation [Unknown]
  - Circulatory collapse [Unknown]
  - Hyponatraemia [Unknown]
  - Haemophagocytic lymphohistiocytosis [Unknown]
  - Leukopenia [Unknown]
  - Retroperitoneal haemorrhage [Unknown]
  - Chronic gastritis [Unknown]
  - Glomerulosclerosis [Unknown]
  - Hypochromic anaemia [Unknown]
  - Pericarditis [Unknown]
  - General physical health deterioration [Unknown]
  - Viral myocarditis [Unknown]
  - Pancytopenia [Unknown]
  - Folate deficiency [Unknown]
  - Epistaxis [Unknown]
  - Back pain [Unknown]
  - Serum ferritin increased [Unknown]
  - Aortic arteriosclerosis [Unknown]
  - Lymphadenopathy [Unknown]
  - Blood lactate dehydrogenase increased [Unknown]
  - Dizziness [Unknown]
  - Splenomegaly [Unknown]
  - Duodenal polyp [Unknown]
  - Blood pressure decreased [Unknown]
  - Apathy [Unknown]
  - Reticulocyte count decreased [Unknown]
  - Pyrexia [Unknown]
  - Headache [Unknown]
  - Weight decreased [Unknown]
  - Asthenia [Unknown]
  - Visual impairment [Unknown]
  - Decreased appetite [Unknown]

NARRATIVE: CASE EVENT DATE: 20170625
